FAERS Safety Report 4507829-X (Version None)
Quarter: 2004Q4

REPORT INFORMATION
  Report Type: 
  Country: None (occurrence: None)
  Receive Date: 20041123
  Receipt Date: 20041116
  Transmission Date: 20050328
  Serious: Yes (Other)
  Sender: FDA-Public Use
  Company Number: ES-BRISTOL-MYERS SQUIBB COMPANY-12769600

PATIENT
  Age: 50 Year
  Sex: Female

DRUGS (2)
  1. LIPEMOL [Suspect]
     Indication: HYPERCHOLESTEROLAEMIA
     Route: 048
  2. LEVOTHROID [Concomitant]
     Indication: HYPOTHYROIDISM

REACTIONS (1)
  - PEMPHIGOID [None]
